FAERS Safety Report 8354079-5 (Version None)
Quarter: 2012Q2

REPORT INFORMATION
  Report Type: 
  Country: None (occurrence: None)
  Receive Date: 20120511
  Receipt Date: 20120508
  Transmission Date: 20120825
  Serious: Yes (Death, Hospitalization)
  Sender: FDA-Public Use
  Company Number: US-ABBOTT-12P-163-0899360-00

PATIENT
  Sex: Male
  Weight: 63.56 kg

DRUGS (8)
  1. HUMIRA [Suspect]
     Indication: PSORIASIS
     Dates: start: 20110711, end: 20110825
  2. HUMIRA [Suspect]
     Dates: start: 20110113, end: 20110509
  3. LACTULOSE [Concomitant]
     Indication: PRODUCT USED FOR UNKNOWN INDICATION
  4. UNKNOWN MEDICATION [Concomitant]
     Indication: HYPERTENSION
     Dates: end: 20111111
  5. UNKNOWN LIVER MEDICATION [Concomitant]
     Indication: HEPATIC CIRRHOSIS
     Dates: end: 20111111
  6. ALDACTONE [Concomitant]
     Indication: PRODUCT USED FOR UNKNOWN INDICATION
  7. NICOTINE [Concomitant]
     Indication: PRODUCT USED FOR UNKNOWN INDICATION
     Dosage: PATCH
     Route: 062
  8. NALDOLOL [Concomitant]
     Indication: PRODUCT USED FOR UNKNOWN INDICATION

REACTIONS (3)
  - HEPATORENAL SYNDROME [None]
  - ASCITES [None]
  - HEPATIC CIRRHOSIS [None]
